FAERS Safety Report 19712341 (Version 1)
Quarter: 2021Q3

REPORT INFORMATION
  Report Type: Spontaneous
  Country: US (occurrence: US)
  Receive Date: 20210817
  Receipt Date: 20210817
  Transmission Date: 20211014
  Serious: No
  Sender: FDA-Public Use
  Company Number: None

PATIENT
  Age: 77 Year
  Sex: Male
  Weight: 136 kg

DRUGS (2)
  1. LENALIDOMIDE(LENALIDOMIDE 25MG CAP,ORAL) [Suspect]
     Active Substance: LENALIDOMIDE
     Indication: PLASMA CELL MYELOMA
     Route: 048
     Dates: start: 20210301, end: 20210323
  2. ATORVASTATIN (ATORVASTATIN CA 10MG TAB) [Suspect]
     Active Substance: ATORVASTATIN
     Indication: HYPERLIPIDAEMIA
     Route: 048
     Dates: start: 20201008, end: 20210419

REACTIONS (4)
  - Anaemia [None]
  - Acute kidney injury [None]
  - Myalgia [None]
  - Thrombocytopenia [None]

NARRATIVE: CASE EVENT DATE: 20210323
